FAERS Safety Report 23995820 (Version 4)
Quarter: 2024Q3

REPORT INFORMATION
  Report Type: Spontaneous
  Country: JP (occurrence: None)
  Receive Date: 20240620
  Receipt Date: 20240830
  Transmission Date: 20241016
  Serious: Yes (Life-Threatening, Disabling, Other)
  Sender: ASTRAZENECA
  Company Number: 2024A140741

PATIENT
  Age: 73 Year
  Sex: Male

DRUGS (10)
  1. ONDEXXYA [Suspect]
     Active Substance: ANDEXANET ALFA
     Indication: Haemorrhage
     Dosage: 800.0MG UNKNOWN
     Route: 042
     Dates: start: 20240606, end: 20240606
  2. ONDEXXYA [Suspect]
     Active Substance: ANDEXANET ALFA
     Indication: Haemorrhage
     Dosage: 1000.0MG UNKNOWN
     Route: 042
     Dates: start: 20240607, end: 20240607
  3. CARBAZOCHROME SODIUM SULFONATE [Suspect]
     Active Substance: CARBAZOCHROME SODIUM SULFONATE
     Route: 042
     Dates: start: 20240606, end: 20240609
  4. TRANSAMIN [Suspect]
     Active Substance: TRANEXAMIC ACID
     Route: 042
     Dates: start: 20240606, end: 20240609
  5. NICARDIPINE HYDROCHLORIDE [Suspect]
     Active Substance: NICARDIPINE HYDROCHLORIDE
     Route: 042
     Dates: start: 20240606, end: 20240608
  6. FAMOTIDINE [Suspect]
     Active Substance: FAMOTIDINE
     Route: 042
     Dates: start: 20240606, end: 20240609
  7. XARELTO [Suspect]
     Active Substance: RIVAROXABAN
     Dosage: DOSE UNKNOWN
     Route: 048
     Dates: start: 20240530, end: 20240606
  8. BENIDIPINE HYDROCHLORIDE [Suspect]
     Active Substance: BENIDIPINE HYDROCHLORIDE
     Route: 048
     Dates: start: 20240530, end: 20240606
  9. ROSUVASTATIN [Concomitant]
     Active Substance: ROSUVASTATIN\ROSUVASTATIN CALCIUM
     Route: 048
     Dates: start: 20240530, end: 20240606
  10. FEBUXOSTAT [Concomitant]
     Active Substance: FEBUXOSTAT
     Route: 048
     Dates: start: 20240530, end: 20240606

REACTIONS (10)
  - Cerebral thrombosis [Not Recovered/Not Resolved]
  - Ventricular tachycardia [Unknown]
  - Anaemia [Unknown]
  - Cardiac failure [Recovering/Resolving]
  - Heart failure with reduced ejection fraction [Recovering/Resolving]
  - Pneumonia [Unknown]
  - Pleural effusion [Unknown]
  - Malnutrition [Unknown]
  - Oedema peripheral [Unknown]
  - Obstructive airways disorder [Unknown]

NARRATIVE: CASE EVENT DATE: 20240601
